FAERS Safety Report 18242822 (Version 1)
Quarter: 2020Q3

REPORT INFORMATION
  Report Type: Spontaneous
  Country: US (occurrence: US)
  Receive Date: 20200908
  Receipt Date: 20200908
  Transmission Date: 20201103
  Serious: No
  Sender: FDA-Public Use
  Company Number: US-TARO-2020TAR01150

PATIENT

DRUGS (2)
  1. WARFARIN SODIUM TABLETS USP 10MG [Suspect]
     Active Substance: WARFARIN SODIUM
     Indication: THROMBOSIS
     Dosage: 10 MILLIGRAM, DAILY
     Route: 065
  2. FONDAPARINUX [Concomitant]
     Active Substance: FONDAPARINUX
     Indication: THROMBOSIS
     Dosage: 7.5 MG/0.6 ML INJECTION
     Route: 065

REACTIONS (1)
  - Drug ineffective [Unknown]

NARRATIVE: CASE EVENT DATE: 20200617
